FAERS Safety Report 5188349-9 (Version None)
Quarter: 2006Q4

REPORT INFORMATION
  Report Type: 
  Country: None (occurrence: None)
  Receive Date: 20061221
  Receipt Date: 20061215
  Transmission Date: 20070319
  Serious: Yes (Hospitalization, Other)
  Sender: FDA-Public Use
  Company Number: US-PURDUE-USA_2006_0025998

PATIENT
  Age: 50 Year
  Sex: Male

DRUGS (2)
  1. OXYCONTIN [Suspect]
     Indication: PAIN
     Dosage: UNK UNK, UNK
     Route: 065
     Dates: start: 20020101, end: 20060301
  2. HYDROCODONE BITARTRATE [Suspect]
     Indication: PAIN
     Dosage: UNK UNK, UNK
     Route: 065
     Dates: start: 20020101, end: 20060301

REACTIONS (4)
  - DRUG DEPENDENCE [None]
  - DRUG TOLERANCE INCREASED [None]
  - SUICIDE ATTEMPT [None]
  - TREMOR [None]
